FAERS Safety Report 17711185 (Version 1)
Quarter: 2020Q2

REPORT INFORMATION
  Report Type: Spontaneous
  Country: US (occurrence: US)
  Receive Date: 20200427
  Receipt Date: 20200427
  Transmission Date: 20200714
  Serious: Yes (Hospitalization)
  Sender: FDA-Public Use
  Company Number: US-ASTRAZENECA-2020SE55148

PATIENT
  Age: 1 Year
  Sex: Male
  Weight: 7.7 kg

DRUGS (5)
  1. ALBUTEROL. [Concomitant]
     Active Substance: ALBUTEROL
  2. POLY-VI-SOL [Concomitant]
     Active Substance: VITAMINS
  3. SYNAGIS [Suspect]
     Active Substance: PALIVIZUMAB
     Indication: ANTIVIRAL PROPHYLAXIS
     Route: 030
  4. AMOXICILLIN. [Concomitant]
     Active Substance: AMOXICILLIN
  5. IRON FLOVENT [Concomitant]

REACTIONS (2)
  - Respiratory syncytial virus infection [Unknown]
  - Pneumonia [Unknown]

NARRATIVE: CASE EVENT DATE: 2020
